FAERS Safety Report 17280505 (Version 1)
Quarter: 2020Q1

REPORT INFORMATION
  Report Type: Spontaneous
  Country: US (occurrence: US)
  Receive Date: 20200117
  Receipt Date: 20200117
  Transmission Date: 20200409
  Serious: No
  Sender: FDA-Public Use
  Company Number: US-UCBSA-2019019908

PATIENT
  Age: 34 Year
  Sex: Female

DRUGS (3)
  1. KEPPRA XR [Suspect]
     Active Substance: LEVETIRACETAM
     Dosage: 750 MG DIALY
     Dates: start: 201902
  2. KEPPRA [Suspect]
     Active Substance: LEVETIRACETAM
     Indication: PRODUCT USED FOR UNKNOWN INDICATION
  3. KEPPRA XR [Suspect]
     Active Substance: LEVETIRACETAM
     Indication: PRODUCT USED FOR UNKNOWN INDICATION
     Dosage: 500 MILLIGRAM, DIALY

REACTIONS (4)
  - Dry eye [Unknown]
  - Dry mouth [Unknown]
  - Stomatitis [Unknown]
  - Oropharyngeal pain [Unknown]

NARRATIVE: CASE EVENT DATE: 2019
